FAERS Safety Report 23444602 (Version 2)
Quarter: 2024Q1

REPORT INFORMATION
  Report Type: Report from Study
  Country: US (occurrence: US)
  Receive Date: 20240125
  Receipt Date: 20240201
  Transmission Date: 20240410
  Serious: No
  Sender: FDA-Public Use
  Company Number: US-ABBVIE-5597271

PATIENT
  Sex: Female

DRUGS (1)
  1. IMBRUVICA [Suspect]
     Active Substance: IBRUTINIB
     Indication: Chronic lymphocytic leukaemia
     Route: 048
     Dates: start: 202312

REACTIONS (9)
  - Animal scratch [Recovering/Resolving]
  - Contusion [Unknown]
  - Rash erythematous [Unknown]
  - Dermatitis contact [Unknown]
  - Papule [Unknown]
  - Fatigue [Unknown]
  - Peripheral swelling [Unknown]
  - Osteoporosis [Unknown]
  - Lymphadenopathy [Unknown]
